FAERS Safety Report 9721163 (Version 2)
Quarter: 2014Q2

REPORT INFORMATION
  Report Type: Spontaneous
  Country: CA (occurrence: CA)
  Receive Date: 20131129
  Receipt Date: 20140424
  Transmission Date: 20141212
  Serious: Yes (Other)
  Sender: FDA-Public Use
  Company Number: CA-ABBVIE-13P-028-1174431-00

PATIENT
  Age: 65 Year
  Sex: Female
  Weight: 58.1 kg

DRUGS (2)
  1. SYNTHROID [Suspect]
     Indication: THYROID DISORDER
  2. PREMARIN [Suspect]
     Indication: VULVOVAGINAL DRYNESS
     Dosage: CYCLIC (DAILY, 3 WEEKS ON/ 3 WEEKS OFF)
     Route: 067
     Dates: start: 201306

REACTIONS (1)
  - Breast discharge [Not Recovered/Not Resolved]
